FAERS Safety Report 19051212 (Version 2)
Quarter: 2021Q2

REPORT INFORMATION
  Report Type: Report from Study
  Country: JP (occurrence: JP)
  Receive Date: 20210324
  Receipt Date: 20210430
  Transmission Date: 20210717
  Serious: Yes (Life-Threatening, Hospitalization, Other)
  Sender: FDA-Public Use
  Company Number: NVSJ2021JP004044

PATIENT
  Age: 84 Year
  Sex: Male

DRUGS (14)
  1. CYCLOSPORINE. [Suspect]
     Active Substance: CYCLOSPORINE
     Indication: APLASTIC ANAEMIA
     Dosage: 200 MG
     Route: 048
     Dates: start: 20191017, end: 20200429
  2. THYMOGLOBULINE [Suspect]
     Active Substance: LAPINE T-LYMPHOCYTE IMMUNE GLOBULIN
     Indication: APLASTIC ANAEMIA
     Dosage: 125 MG
     Route: 065
     Dates: start: 20191028, end: 20191101
  3. FILGRASTIM [Concomitant]
     Active Substance: FILGRASTIM
     Indication: PRODUCT USED FOR UNKNOWN INDICATION
     Dosage: 150 UG
     Route: 065
     Dates: start: 20191106, end: 20201225
  4. CONCENTRATED RED CELLS [Concomitant]
     Active Substance: HUMAN RED BLOOD CELL
     Dosage: 840 ML
     Route: 065
     Dates: start: 20191112, end: 20191209
  5. CONCENTRATED RED CELLS [Concomitant]
     Active Substance: HUMAN RED BLOOD CELL
     Indication: PRODUCT USED FOR UNKNOWN INDICATION
     Dosage: TOTAL AMOUNT OF TRANSFUSION: 840 ML, FREQUENCY: 3/MONTH,
     Route: 065
     Dates: start: 20191015, end: 20191111
  6. CONCENTRATED RED CELLS [Concomitant]
     Active Substance: HUMAN RED BLOOD CELL
     Dosage: TOTAL AMOUNT OF TRANSFUSION: 280 ML, FREQUENCY: 1/MONTH,
     Route: 065
     Dates: start: 20200107, end: 20200203
  7. REVOLADE TAB [Suspect]
     Active Substance: ELTROMBOPAG OLAMINE
     Indication: APLASTIC ANAEMIA
     Dosage: 25 MG
     Route: 048
     Dates: start: 20191210, end: 20200507
  8. NEUTROGIN [Concomitant]
     Active Substance: LENOGRASTIM
     Indication: PRODUCT USED FOR UNKNOWN INDICATION
     Dosage: 250 UG
     Route: 065
     Dates: start: 20191102, end: 20191105
  9. CONCENTRATED RED CELLS [Concomitant]
     Active Substance: HUMAN RED BLOOD CELL
     Dosage: TOTAL AMOUNT OF TRANSFUSION: 560 ML, FREQUENCY: 2/MONTH,
     Route: 065
     Dates: start: 20191210, end: 20200106
  10. REVOLADE TAB [Suspect]
     Active Substance: ELTROMBOPAG OLAMINE
     Dosage: 12.5 MG
     Route: 048
     Dates: start: 20200508
  11. CYCLOSPORINE. [Suspect]
     Active Substance: CYCLOSPORINE
     Dosage: 150 MG
     Route: 048
     Dates: start: 20200430
  12. CONCENTRATED RED CELLS [Concomitant]
     Active Substance: HUMAN RED BLOOD CELL
     Dosage: TOTAL AMOUNT OF TRANSFUSION: 280 ML, FREQUENCY: 1/MONTH,
     Route: 065
     Dates: start: 20200204, end: 20200302
  13. PLATELETS [Concomitant]
     Active Substance: HUMAN PLATELET, ALLOGENIC
     Indication: PRODUCT USED FOR UNKNOWN INDICATION
     Dosage: TOTAL AMOUNT OF TRANSFUSION: 1600ML, FREQUENCY: 8/MONTH
     Route: 065
     Dates: start: 20191015, end: 20191111
  14. PLATELETS [Concomitant]
     Active Substance: HUMAN PLATELET, ALLOGENIC
     Dosage: TOTAL AMOUNT OF TRANSFUSION: 800 ML, FREQUENCY: 4/MONTH
     Route: 065
     Dates: start: 20191112, end: 20191209

REACTIONS (7)
  - White blood cell count decreased [Unknown]
  - Renal impairment [Recovered/Resolved]
  - Neutrophil count decreased [Recovered/Resolved]
  - Myelosuppression [Unknown]
  - Dehydration [Unknown]
  - Haemoglobin decreased [Unknown]
  - Platelet count decreased [Unknown]

NARRATIVE: CASE EVENT DATE: 20191209
